FAERS Safety Report 6130773-1 (Version None)
Quarter: 2009Q1

REPORT INFORMATION
  Report Type: 
  Country: None (occurrence: None)
  Receive Date: 20090323
  Receipt Date: 20090312
  Transmission Date: 20090719
  Serious: Yes (Disabling)
  Sender: FDA-Public Use
  Company Number: 2009AP000156

PATIENT
  Age: 49 Year
  Sex: Male

DRUGS (1)
  1. LAMOTRIGINE [Suspect]
     Indication: EPILEPSY
     Dosage: PO
     Route: 048

REACTIONS (3)
  - ARTHROPATHY [None]
  - DACTYLITIS [None]
  - SYSTEMIC LUPUS ERYTHEMATOSUS [None]
